FAERS Safety Report 5489963-3 (Version None)
Quarter: 2007Q4

REPORT INFORMATION
  Report Type: 
  Country: None (occurrence: None)
  Receive Date: 20071018
  Receipt Date: 20071010
  Transmission Date: 20080405
  Serious: Yes (Other)
  Sender: FDA-Public Use
  Company Number: FR-PFIZER INC-2007085475

PATIENT
  Age: 67 Year
  Sex: Male

DRUGS (1)
  1. TAHOR [Suspect]
     Dosage: DAILY DOSE:20MG-FREQ:DAILY

REACTIONS (1)
  - MUSCLE STRAIN [None]
